FAERS Safety Report 7234328-7 (Version None)
Quarter: 2011Q1

REPORT INFORMATION
  Report Type: 
  Country: None (occurrence: None)
  Receive Date: 20110119
  Receipt Date: 20110110
  Transmission Date: 20110831
  Serious: Yes (Hospitalization)
  Sender: FDA-Public Use
  Company Number: FR-PFIZER INC-2011005534

PATIENT
  Age: 51 Year
  Sex: Male

DRUGS (3)
  1. ZYVOX [Suspect]
     Indication: ERYSIPELAS
     Dosage: 1200 MG, 1X/DAY
     Route: 042
     Dates: start: 20101006, end: 20101006
  2. LOVENOX [Concomitant]
     Dosage: 4000 UL, UNK
     Route: 058
  3. CONTRAMAL [Concomitant]
     Dosage: 50 MG, 4X/DAY

REACTIONS (2)
  - COLD SWEAT [None]
  - ACCIDENTAL OVERDOSE [None]
